FAERS Safety Report 8044519-3 (Version None)
Quarter: 2012Q1

REPORT INFORMATION
  Report Type: 
  Country: None (occurrence: None)
  Receive Date: 20120113
  Receipt Date: 20111114
  Transmission Date: 20120608
  Serious: No
  Sender: FDA-Public Use
  Company Number: US-TEVA-299792USA

PATIENT
  Sex: Male

DRUGS (6)
  1. LOVASTATIN [Concomitant]
  2. OMEPRAZOLE [Concomitant]
  3. MELOXICAM [Concomitant]
  4. NICOTINIC ACID [Concomitant]
  5. ACETYLSALICYLIC ACID SRT [Concomitant]
  6. TRIAMCINOLONE [Suspect]
     Indication: NASAL CONGESTION
     Dosage: 1 PUFF AS NEEDED
     Route: 045
     Dates: start: 20110623, end: 20110901

REACTIONS (3)
  - VERTIGO [None]
  - NAUSEA [None]
  - MIGRAINE [None]
